FAERS Safety Report 6137914-0 (Version None)
Quarter: 2009Q1

REPORT INFORMATION
  Report Type: 
  Country: None (occurrence: None)
  Receive Date: 20090327
  Receipt Date: 20090327
  Transmission Date: 20090719
  Serious: Yes (Disabling)
  Sender: FDA-Public Use
  Company Number: None

PATIENT
  Sex: Female
  Weight: 37.6486 kg

DRUGS (1)
  1. RECLAST [Suspect]

REACTIONS (4)
  - ACNE [None]
  - ILL-DEFINED DISORDER [None]
  - LOOSE TOOTH [None]
  - TOOTH DISORDER [None]
